FAERS Safety Report 18084964 (Version 1)
Quarter: 2020Q3

REPORT INFORMATION
  Report Type: Spontaneous
  Country: HR (occurrence: HR)
  Receive Date: 20200729
  Receipt Date: 20200729
  Transmission Date: 20201103
  Serious: No
  Sender: FDA-Public Use
  Company Number: HR-ALKEM LABORATORIES LIMITED-HR-ALKEM-2020-01017

PATIENT
  Age: 34 Year
  Sex: Female

DRUGS (3)
  1. CEFUROXIME AXETIL. [Suspect]
     Active Substance: CEFUROXIME AXETIL
     Indication: ESCHERICHIA URINARY TRACT INFECTION
     Dosage: 500 MILLIGRAM(12 PER HOUR)
     Route: 065
  2. DICLOFENAC POTASSIUM. [Suspect]
     Active Substance: DICLOFENAC POTASSIUM
     Indication: PAIN
     Dosage: 75 MILLIGRAM
     Route: 065
  3. ASPIRIN. [Suspect]
     Active Substance: ASPIRIN
     Indication: PROPHYLAXIS
     Dosage: 100 MILLIGRAM, QD
     Route: 065

REACTIONS (5)
  - Urticaria pigmentosa [Unknown]
  - Throat tightness [Unknown]
  - Skin lesion [Unknown]
  - Dyspnoea [Unknown]
  - Maternal exposure during pregnancy [Unknown]
